FAERS Safety Report 25582227 (Version 1)
Quarter: 2025Q3

REPORT INFORMATION
  Report Type: Spontaneous
  Country: CN (occurrence: CN)
  Receive Date: 20250719
  Receipt Date: 20250719
  Transmission Date: 20251020
  Serious: Yes (Hospitalization)
  Sender: IPSEN BIOPHARMACEUTICALS, INC.
  Company Number: None

PATIENT
  Age: 56 Year
  Sex: Male
  Weight: 67 kg

DRUGS (2)
  1. ONIVYDE [Suspect]
     Active Substance: IRINOTECAN HYDROCHLORIDE
     Indication: Pancreatic carcinoma
     Dosage: 86 MG, QD
     Route: 041
     Dates: start: 20250427, end: 20250427
  2. OXALIPLATIN [Concomitant]
     Active Substance: OXALIPLATIN
     Indication: Pancreatic carcinoma
     Dosage: 100 MG, QD
     Route: 041
     Dates: start: 20250427, end: 20250427

REACTIONS (2)
  - Platelet count decreased [Recovering/Resolving]
  - Product use issue [Recovered/Resolved]

NARRATIVE: CASE EVENT DATE: 20250427
